FAERS Safety Report 8176714-7 (Version None)
Quarter: 2012Q1

REPORT INFORMATION
  Report Type: 
  Country: None (occurrence: None)
  Receive Date: 20120228
  Receipt Date: 20120220
  Transmission Date: 20120608
  Serious: Yes (Hospitalization)
  Sender: FDA-Public Use
  Company Number: FRP11000286

PATIENT
  Age: 69 Year
  Sex: Female

DRUGS (8)
  1. METHOTREXATE [Suspect]
     Dosage: 20 MG/ML, 1 /DAY, OTHER
     Route: 050
     Dates: start: 19920101
  2. LEUCOVORIN CALCIUM [Suspect]
     Dosage: 20 MG, 1 /WEEK, ORAL
     Route: 048
  3. CALTRATE + VITAMIN D(CALCIUM CARBONATE, COLECALCIFEROL) [Suspect]
     Dosage: 1 DF, 1 /DAY, ORAL
     Route: 048
  4. LANSOPRAZOLE [Suspect]
     Dosage: 15 MG, AS NEEDED, ORAL
     Route: 048
  5. PREDNISONE TAB [Concomitant]
  6. ACTONEL [Suspect]
     Dosage: 75 MG, 2 CD/MONTH, ORAL
     Route: 048
  7. CELEBREX [Suspect]
     Dosage: 200 MG, 1 /DAY, ORAL
     Route: 048
  8. ENBREL [Suspect]
     Indication: RHEUMATOID ARTHRITIS
     Dosage: 50 MG, 1 /WEEK, SUBCUTANEOUS
     Route: 058
     Dates: start: 20101101

REACTIONS (8)
  - WEIGHT DECREASED [None]
  - HALLUCINATION, AUDITORY [None]
  - PSYCHOMOTOR HYPERACTIVITY [None]
  - SPEECH DISORDER [None]
  - PERSECUTORY DELUSION [None]
  - INSOMNIA [None]
  - SCHIZOPHRENIA [None]
  - DEMENTIA [None]
